FAERS Safety Report 10077312 (Version 2)
Quarter: 2014Q2

REPORT INFORMATION
  Report Type: Spontaneous
  Country: FR (occurrence: FR)
  Receive Date: 20140414
  Receipt Date: 20140502
  Transmission Date: 20141212
  Serious: Yes (Death)
  Sender: FDA-Public Use
  Company Number: FR-OPTIMER-20140059

PATIENT
  Age: 64 Year
  Sex: Female
  Weight: 68 kg

DRUGS (6)
  1. DIFICLIR [Suspect]
     Indication: CLOSTRIDIUM DIFFICILE INFECTION
     Dosage: 200 MG, BID
     Route: 048
     Dates: start: 20140303, end: 20140307
  2. VANCOMYCIN [Concomitant]
     Indication: CLOSTRIDIUM DIFFICILE INFECTION
     Dosage: UNK
  3. VANCOMYCIN [Concomitant]
     Indication: PERITONITIS
  4. FLAGYL [Concomitant]
     Indication: CLOSTRIDIUM DIFFICILE INFECTION
     Dosage: UNK
  5. FLAGYL [Concomitant]
     Indication: PERITONITIS
  6. NORADRENALINE [Concomitant]
     Dosage: UNK

REACTIONS (2)
  - Multi-organ failure [Fatal]
  - Autoimmune disorder [Unknown]
